FAERS Safety Report 12956773 (Version 1)
Quarter: 2016Q4

REPORT INFORMATION
  Report Type: Report from Study
  Country: MX (occurrence: MX)
  Receive Date: 20161118
  Receipt Date: 20161118
  Transmission Date: 20170207
  Serious: Yes (Death)
  Sender: FDA-Public Use
  Company Number: PHHY2016MX158031

PATIENT
  Sex: Male

DRUGS (2)
  1. DANAZOL. [Concomitant]
     Active Substance: DANAZOL
     Indication: PLATELET COUNT INCREASED
     Dosage: 100 MG, UNK
     Route: 048
     Dates: start: 201507, end: 201609
  2. EXJADE [Suspect]
     Active Substance: DEFERASIROX
     Indication: APLASTIC ANAEMIA
     Dosage: 10 MG/KG (500 MG), QD
     Route: 065
     Dates: start: 20160106

REACTIONS (4)
  - Pain [Unknown]
  - Hypovolaemic shock [Fatal]
  - Burning sensation [Unknown]
  - Abdominal discomfort [Unknown]
